FAERS Safety Report 7013154-8 (Version None)
Quarter: 2010Q3

REPORT INFORMATION
  Report Type: 
  Country: None (occurrence: None)
  Receive Date: 20100924
  Receipt Date: 20100916
  Transmission Date: 20110219
  Serious: Yes (Hospitalization, Other)
  Sender: FDA-Public Use
  Company Number: US-PFIZER INC-2010119704

PATIENT
  Sex: Female
  Weight: 59 kg

DRUGS (2)
  1. PROVERA [Suspect]
     Indication: HOT FLUSH
     Dosage: 2.5 MG, DAILY
     Route: 048
     Dates: start: 19920101, end: 20050101
  2. PREMARIN [Suspect]
     Indication: HOT FLUSH
     Dosage: 0.625 MG, DAILY
     Route: 048
     Dates: start: 19920101, end: 20050101

REACTIONS (3)
  - COLON CANCER [None]
  - NOSOCOMIAL INFECTION [None]
  - WEIGHT INCREASED [None]
